FAERS Safety Report 20636846 (Version 1)
Quarter: 2022Q1

REPORT INFORMATION
  Report Type: Spontaneous
  Country: US (occurrence: None)
  Receive Date: 20220324
  Receipt Date: 20220324
  Transmission Date: 20220424
  Serious: Yes (Other)
  Sender: FDA-Public Use
  Company Number: None

PATIENT
  Age: 33 Year
  Sex: Female
  Weight: 87.54 kg

DRUGS (5)
  1. QUETIAPINE [Suspect]
     Active Substance: QUETIAPINE
  2. LAMOTRIGINE [Suspect]
     Active Substance: LAMOTRIGINE
  3. L-METHYLFOLATE CALCIUM [Suspect]
     Active Substance: LEVOMEFOLATE CALCIUM
  4. ALBUTEROL [Suspect]
     Active Substance: ALBUTEROL
  5. FAMOTIDINE [Concomitant]
     Active Substance: FAMOTIDINE

REACTIONS (3)
  - Gestational hypertension [None]
  - Postpartum haemorrhage [None]
  - Maternal exposure during pregnancy [None]

NARRATIVE: CASE EVENT DATE: 20201027
